FAERS Safety Report 25993319 (Version 1)
Quarter: 2025Q4

REPORT INFORMATION
  Report Type: Spontaneous
  Country: US (occurrence: US)
  Receive Date: 20251104
  Receipt Date: 20251104
  Transmission Date: 20260118
  Serious: No
  Sender: STRIDES
  Company Number: US-STRIDES ARCOLAB LIMITED-2025SP002052

PATIENT

DRUGS (14)
  1. ALBUTEROL [Suspect]
     Active Substance: ALBUTEROL
     Indication: Haemolysis neonatal
     Dosage: UNK
     Route: 065
  2. ALBUTEROL [Suspect]
     Active Substance: ALBUTEROL
     Indication: Defect conduction intraventricular
     Dosage: UNK
     Route: 065
  3. ALBUTEROL [Suspect]
     Active Substance: ALBUTEROL
     Indication: Blood potassium increased
  4. FUROSEMIDE [Suspect]
     Active Substance: FUROSEMIDE
     Indication: Defect conduction intraventricular
     Dosage: UNK
     Route: 065
  5. FUROSEMIDE [Suspect]
     Active Substance: FUROSEMIDE
     Indication: Blood potassium increased
  6. CALCIUM GLUCONATE [Suspect]
     Active Substance: CALCIUM GLUCONATE
     Indication: Haemolysis neonatal
     Dosage: UNK
     Route: 065
  7. CALCIUM GLUCONATE [Suspect]
     Active Substance: CALCIUM GLUCONATE
     Indication: Defect conduction intraventricular
     Dosage: UNK
     Route: 065
  8. CALCIUM GLUCONATE [Suspect]
     Active Substance: CALCIUM GLUCONATE
     Indication: Blood potassium increased
  9. INSULIN NOS [Suspect]
     Active Substance: INSULIN NOS
     Indication: Defect conduction intraventricular
     Dosage: UNK
     Route: 065
  10. INSULIN NOS [Suspect]
     Active Substance: INSULIN NOS
     Indication: Blood potassium increased
  11. DEXTROSE [Suspect]
     Active Substance: DEXTROSE MONOHYDRATE
     Indication: Defect conduction intraventricular
     Dosage: UNK
     Route: 065
  12. DEXTROSE [Suspect]
     Active Substance: DEXTROSE MONOHYDRATE
     Indication: Blood potassium increased
     Dosage: UNK
     Route: 065
  13. DEXTROSE [Suspect]
     Active Substance: DEXTROSE MONOHYDRATE
     Indication: Haemolysis neonatal
  14. SODIUM ACETATE [Concomitant]
     Active Substance: SODIUM ACETATE
     Indication: Haemolysis neonatal
     Dosage: UNK
     Route: 065

REACTIONS (2)
  - Drug ineffective for unapproved indication [Unknown]
  - Off label use [Unknown]
